FAERS Safety Report 21937876 (Version 1)
Quarter: 2023Q1

REPORT INFORMATION
  Report Type: Spontaneous
  Country: US (occurrence: None)
  Receive Date: 20230201
  Receipt Date: 20230201
  Transmission Date: 20230417
  Serious: Yes (Other)
  Sender: FDA-Public Use
  Company Number: None

PATIENT
  Age: 30 Year
  Sex: Male

DRUGS (1)
  1. BUPRENORPHINE\NALOXONE [Suspect]
     Active Substance: BUPRENORPHINE\NALOXONE
     Indication: Drug dependence
     Dosage: FREQUENCY : DAILY;?
     Route: 060
     Dates: start: 20220812

REACTIONS (6)
  - Product solubility abnormal [None]
  - Drug level below therapeutic [None]
  - Drug withdrawal syndrome [None]
  - Hyperhidrosis [None]
  - Chills [None]
  - Restlessness [None]

NARRATIVE: CASE EVENT DATE: 20230131
